FAERS Safety Report 8334026-2 (Version None)
Quarter: 2012Q2

REPORT INFORMATION
  Report Type: 
  Country: None (occurrence: None)
  Receive Date: 20120503
  Receipt Date: 20120424
  Transmission Date: 20120825
  Serious: Yes (Hospitalization)
  Sender: FDA-Public Use
  Company Number: US-ABBOTT-12P-163-0929077-00

PATIENT
  Sex: Female

DRUGS (1)
  1. HUMIRA [Suspect]
     Indication: PSORIASIS
     Dates: start: 20111001

REACTIONS (3)
  - RESPIRATORY DISORDER [None]
  - UNEVALUABLE EVENT [None]
  - LOWER RESPIRATORY TRACT INFECTION [None]
